FAERS Safety Report 18670632 (Version 1)
Quarter: 2020Q4

REPORT INFORMATION
  Report Type: Spontaneous
  Country: FR (occurrence: FR)
  Receive Date: 20201228
  Receipt Date: 20201228
  Transmission Date: 20210114
  Serious: Yes (Disabling, Other)
  Sender: FDA-Public Use
  Company Number: FR-009507513-2012FRA002487

PATIENT
  Age: 91 Year
  Sex: Male
  Weight: 56.5 kg

DRUGS (1)
  1. NASONEX [Suspect]
     Active Substance: MOMETASONE FUROATE
     Indication: RHINITIS
     Dosage: 4 DOSAGE FORM (AT A POSOLOGY OF 2 PULVERIZATIONS IN EACH NOSTRIL), QD
     Route: 045
     Dates: start: 20201120, end: 20201127

REACTIONS (1)
  - Eye haemorrhage [Not Recovered/Not Resolved]

NARRATIVE: CASE EVENT DATE: 20201127
